FAERS Safety Report 15097712 (Version 1)
Quarter: 2018Q2

REPORT INFORMATION
  Report Type: Spontaneous
  Country: US (occurrence: US)
  Receive Date: 20180610
  Receipt Date: 20180610
  Transmission Date: 20180711
  Serious: No
  Sender: FDA-Public Use
  Company Number: None

PATIENT
  Sex: Female

DRUGS (1)
  1. SAL3 [Suspect]
     Active Substance: SULFUR
     Indication: DANDRUFF
     Dosage: ?          QUANTITY:1 BAR OF SOAP;?
     Route: 061

REACTIONS (2)
  - Product use in unapproved indication [None]
  - Product use issue [None]

NARRATIVE: CASE EVENT DATE: 20180610
